FAERS Safety Report 17461398 (Version 1)
Quarter: 2020Q1

REPORT INFORMATION
  Report Type: Spontaneous
  Country: CN (occurrence: CN)
  Receive Date: 20200226
  Receipt Date: 20200226
  Transmission Date: 20200409
  Serious: Yes (Hospitalization)
  Sender: FDA-Public Use
  Company Number: CN-ABBVIE-20P-035-3292724-00

PATIENT
  Age: 55 Year
  Sex: Male
  Weight: 85 kg

DRUGS (3)
  1. DAI WEN [Concomitant]
     Active Substance: VALSARTAN
     Indication: HYPERTENSION
     Dosage: ONCE A DAY
     Route: 048
  2. LIPANTHYL [Suspect]
     Active Substance: FENOFIBRATE
     Indication: BLOOD CHOLESTEROL INCREASED
     Route: 048
     Dates: start: 20200217, end: 20200218
  3. LIPANTHYL [Suspect]
     Active Substance: FENOFIBRATE
     Indication: BLOOD TRIGLYCERIDES INCREASED
     Route: 048
     Dates: start: 2019, end: 2019

REACTIONS (13)
  - Hepatic function abnormal [Recovering/Resolving]
  - Blood bilirubin increased [Recovering/Resolving]
  - Total bile acids increased [Recovering/Resolving]
  - Yellow skin [Recovering/Resolving]
  - Liver disorder [Recovering/Resolving]
  - Gamma-glutamyltransferase increased [Recovering/Resolving]
  - Glutamate dehydrogenase increased [Recovering/Resolving]
  - Jaundice [Recovering/Resolving]
  - Vomiting [Recovering/Resolving]
  - Alanine aminotransferase increased [Recovering/Resolving]
  - Chromaturia [Recovering/Resolving]
  - Aspartate aminotransferase increased [Recovering/Resolving]
  - Dyspepsia [Recovering/Resolving]

NARRATIVE: CASE EVENT DATE: 20200218
